FAERS Safety Report 9665789 (Version 2)
Quarter: 2013Q4

REPORT INFORMATION
  Report Type: Report from Study
  Country: US (occurrence: US)
  Receive Date: 20131104
  Receipt Date: 20131104
  Transmission Date: 20140711
  Serious: Yes (Hospitalization, Other)
  Sender: FDA-Public Use
  Company Number: PHEH2013US015533

PATIENT
  Age: 70 Year
  Sex: Female
  Weight: 40 kg

DRUGS (7)
  1. AFINITOR [Suspect]
     Indication: BREAST CANCER
     Dosage: 10 MG, DAILY
     Route: 048
  2. AFINITOR [Suspect]
     Dosage: 2.5 MG, QD
     Dates: start: 20130329, end: 20130719
  3. EXEMESTANE [Concomitant]
  4. B6 [Concomitant]
  5. LEVOTHROID [Concomitant]
  6. CITALOPRAM [Concomitant]
  7. HYDROCODONE [Concomitant]

REACTIONS (5)
  - Pancytopenia [Recovered/Resolved]
  - Thrombocytopenia [Recovered/Resolved]
  - Leukopenia [Recovered/Resolved]
  - Spinal disorder [Unknown]
  - Drug ineffective [Unknown]
